FAERS Safety Report 5251050-7 (Version None)
Quarter: 2007Q1

REPORT INFORMATION
  Report Type: 
  Country: None (occurrence: None)
  Receive Date: 20070228
  Receipt Date: 20060816
  Transmission Date: 20070707
  Serious: No
  Sender: FDA-Public Use
  Company Number: US-GLAXOSMITHKLINE-A0616940A

PATIENT
  Sex: Female

DRUGS (5)
  1. LAMICTAL [Suspect]
     Dosage: 50MG PER DAY
     Route: 048
  2. EFFEXOR XR [Concomitant]
  3. BUPROPION HCL [Concomitant]
  4. KLONOPIN [Concomitant]
  5. TRILEPTAL [Concomitant]

REACTIONS (3)
  - NAUSEA [None]
  - PRURITUS [None]
  - RASH [None]
